FAERS Safety Report 10763549 (Version 1)
Quarter: 2015Q1

REPORT INFORMATION
  Report Type: Report from Study
  Country: CA (occurrence: CA)
  Receive Date: 20150204
  Receipt Date: 20150204
  Transmission Date: 20150721
  Serious: Yes (Hospitalization)
  Sender: FDA-Public Use
  Company Number: CA-MYLANLABS-2015M1003347

PATIENT

DRUGS (10)
  1. CISPLATIN. [Suspect]
     Active Substance: CISPLATIN
     Indication: NON-SMALL CELL LUNG CANCER
     Dosage: 120 MG, Q3W
     Route: 042
     Dates: start: 20090902
  2. ACTONEL [Concomitant]
     Active Substance: RISEDRONATE SODIUM
     Indication: OSTEOPOROSIS
     Dosage: 35 MG, QW
     Dates: start: 20090105
  3. PEMETREXED [Suspect]
     Active Substance: PEMETREXED
     Dosage: 800 MG, Q3W
     Route: 042
     Dates: start: 20090902
  4. VITAMIN B12 [Concomitant]
     Active Substance: CYANOCOBALAMIN
     Indication: PROPHYLAXIS
     Dosage: Q9W
     Dates: start: 20090826
  5. SERAX                              /00040901/ [Concomitant]
     Indication: ANXIETY
     Dosage: 15 MG, QD
     Dates: start: 20090825
  6. PANTOPRAZOLE [Concomitant]
     Active Substance: PANTOPRAZOLE SODIUM
     Indication: DYSPEPSIA
     Dosage: 40 MG, QD
     Dates: start: 20090909
  7. FOLIC ACID. [Concomitant]
     Active Substance: FOLIC ACID
     Indication: PROPHYLAXIS
     Dosage: 5 MG, QD
     Dates: start: 20090826
  8. SERAX                              /00040901/ [Concomitant]
     Indication: INSOMNIA
  9. ATIVAN [Concomitant]
     Active Substance: LORAZEPAM
     Indication: ANXIETY
     Dosage: 1 MG, PRN
     Dates: start: 20090930
  10. SUNITINIB [Suspect]
     Active Substance: SUNITINIB
     Indication: NON-SMALL CELL LUNG CANCER
     Dosage: 37.5 MG, QD, 2 WEEKS ON, 1 WEEK OFF
     Route: 048
     Dates: start: 20090903

REACTIONS (1)
  - Neutropenia [Recovered/Resolved]

NARRATIVE: CASE EVENT DATE: 20090920
